FAERS Safety Report 13794005 (Version 1)
Quarter: 2017Q3

REPORT INFORMATION
  Report Type: Spontaneous
  Country: US (occurrence: US)
  Receive Date: 20170726
  Receipt Date: 20170726
  Transmission Date: 20171127
  Serious: No
  Sender: FDA-Public Use
  Company Number: None

PATIENT
  Age: 45 Year
  Sex: Female

DRUGS (1)
  1. CAPECITABINE TAB 500MG [Suspect]
     Active Substance: CAPECITABINE

REACTIONS (4)
  - Palmar-plantar erythrodysaesthesia syndrome [None]
  - Nasal discomfort [None]
  - Nasal dryness [None]
  - Epistaxis [None]

NARRATIVE: CASE EVENT DATE: 20170725
